FAERS Safety Report 8422259-6 (Version None)
Quarter: 2012Q2

REPORT INFORMATION
  Report Type: 
  Country: None (occurrence: None)
  Receive Date: 20120608
  Receipt Date: 20120601
  Transmission Date: 20120825
  Serious: Yes (Hospitalization, Disabling)
  Sender: FDA-Public Use
  Company Number: US-BAYER-2011-027273

PATIENT
  Age: 40 Year
  Sex: Female

DRUGS (10)
  1. AMBIEN [Concomitant]
     Dosage: UNK
     Dates: start: 20070701
  2. YASMIN [Suspect]
     Indication: PREMENSTRUAL SYNDROME
     Dosage: UNK
     Dates: start: 20040901, end: 20070701
  3. LISINOPRIL [Concomitant]
     Dosage: 10 MG, DAILY
     Route: 048
     Dates: start: 20070719
  4. OXYCODONE HCL [Concomitant]
     Dosage: UNK
     Dates: start: 20070719
  5. MOTRIN [Concomitant]
  6. CYCLOBENZAPRINE [Concomitant]
     Dosage: 10 MG, DAILY
     Route: 048
     Dates: start: 20070719
  7. RESTORIL [Concomitant]
     Dosage: UNK
     Dates: start: 20070701
  8. HYDROCHLOROTHIAZDE TAB [Concomitant]
     Dosage: 25 MG,DAILY
     Route: 048
     Dates: start: 20070719
  9. KLOR-CON [Concomitant]
     Dosage: 8 MEQ, UNK
     Route: 048
     Dates: start: 20070719
  10. XANAX [Concomitant]
     Dosage: UNK
     Dates: start: 20070701

REACTIONS (9)
  - GAIT DISTURBANCE [None]
  - BACK PAIN [None]
  - ANHEDONIA [None]
  - EMOTIONAL DISTRESS [None]
  - ANXIETY [None]
  - PAIN [None]
  - GENERAL PHYSICAL HEALTH DETERIORATION [None]
  - MOBILITY DECREASED [None]
  - DEEP VEIN THROMBOSIS [None]
